FAERS Safety Report 4860929-7 (Version None)
Quarter: 2005Q4

REPORT INFORMATION
  Report Type: 
  Country: None (occurrence: None)
  Receive Date: 20051216
  Receipt Date: 20051202
  Transmission Date: 20060501
  Serious: Yes (Disabling, Other)
  Sender: FDA-Public Use
  Company Number: MEDI-0003813

PATIENT
  Age: 7 Month
  Sex: Male

DRUGS (4)
  1. SYNAGIS (PALIVIZUMAB) [Suspect]
     Indication: ANTIVIRAL PROPHYLAXIS
     Dosage: 60 + 40 + 55 + 57 MG, 1 IN 30 D, INTRAMUSCULAR
     Route: 030
     Dates: start: 20031221, end: 20040210
  2. SYNAGIS (PALIVIZUMAB) [Suspect]
     Indication: ANTIVIRAL PROPHYLAXIS
     Dosage: 60 + 40 + 55 + 57 MG, 1 IN 30 D, INTRAMUSCULAR
     Route: 030
     Dates: start: 20040309, end: 20040309
  3. SYNAGIS (PALIVIZUMAB) [Suspect]
     Indication: ANTIVIRAL PROPHYLAXIS
     Dosage: 60 + 40 + 55 + 57 MG, 1 IN 30 D, INTRAMUSCULAR
     Route: 030
     Dates: start: 20031221
  4. SYNAGIS (PALIVIZUMAB) [Suspect]
     Indication: ANTIVIRAL PROPHYLAXIS
     Dosage: 60 + 40 + 55 + 57 MG, 1 IN 30 D, INTRAMUSCULAR
     Route: 030
     Dates: start: 20040126

REACTIONS (1)
  - ASTHMA [None]
